FAERS Safety Report 10277427 (Version 4)
Quarter: 2014Q3

REPORT INFORMATION
  Report Type: Report from Study
  Country: CA (occurrence: CA)
  Receive Date: 20140703
  Receipt Date: 20140902
  Transmission Date: 20150326
  Serious: Yes (Hospitalization)
  Sender: FDA-Public Use
  Company Number: CA-ABBVIE-14P-028-1253381-00

PATIENT
  Age: 54 Year
  Sex: Female
  Weight: 45 kg

DRUGS (5)
  1. HUMIRA [Suspect]
     Active Substance: ADALIMUMAB
     Indication: CROHN^S DISEASE
     Route: 058
     Dates: start: 20121129, end: 2014
  2. IMURAN [Concomitant]
     Active Substance: AZATHIOPRINE
     Indication: PRODUCT USED FOR UNKNOWN INDICATION
     Route: 048
  3. HUMIRA [Suspect]
     Active Substance: ADALIMUMAB
     Route: 058
     Dates: start: 2014
  4. PREDNISONE. [Concomitant]
     Active Substance: PREDNISONE
     Route: 048
     Dates: start: 2014
  5. PREDNISONE. [Concomitant]
     Active Substance: PREDNISONE
     Indication: CROHN^S DISEASE
     Route: 048
     Dates: end: 2014

REACTIONS (9)
  - Gastrointestinal inflammation [Recovering/Resolving]
  - Enteritis [Recovering/Resolving]
  - Gastrointestinal infection [Unknown]
  - Drug effect incomplete [Unknown]
  - Crohn^s disease [Recovering/Resolving]
  - Intestinal obstruction [Recovering/Resolving]
  - Gastrointestinal oedema [Recovering/Resolving]
  - Gastrointestinal disorder [Recovering/Resolving]
  - Intestinal mucosal hypertrophy [Recovering/Resolving]

NARRATIVE: CASE EVENT DATE: 20140620
